FAERS Safety Report 12142352 (Version 1)
Quarter: 2016Q1

REPORT INFORMATION
  Report Type: Spontaneous
  Country: US (occurrence: US)
  Receive Date: 20160303
  Receipt Date: 20160303
  Transmission Date: 20160526
  Serious: Yes (Other)
  Sender: FDA-Public Use
  Company Number: US-TEVA-639011USA

PATIENT
  Sex: Female

DRUGS (1)
  1. COPAXONE [Suspect]
     Active Substance: GLATIRAMER ACETATE
     Dosage: UNKNOWN FORM STRENGTH
     Route: 065

REACTIONS (6)
  - Primary progressive multiple sclerosis [Unknown]
  - Fatigue [Unknown]
  - Muscle spasms [Unknown]
  - Feeling hot [Unknown]
  - Feeling abnormal [Unknown]
  - Throat tightness [Unknown]
